FAERS Safety Report 25820887 (Version 1)
Quarter: 2025Q3

REPORT INFORMATION
  Report Type: Spontaneous
  Country: US (occurrence: US)
  Receive Date: 20250919
  Receipt Date: 20250919
  Transmission Date: 20251021
  Serious: No
  Sender: TORRENT PHARMA INC.
  Company Number: US-TORRENT-00014528

PATIENT
  Sex: Female

DRUGS (1)
  1. ZOLPIDEM TARTRATE [Suspect]
     Active Substance: ZOLPIDEM TARTRATE
     Indication: Product used for unknown indication
     Dosage: SHE TOOK ONLY HALF 5 MG AT NIGHT THAT WAS 2.5 MG, AND SHE CUTS TABLET HALF
     Route: 065

REACTIONS (1)
  - Wrong technique in product usage process [Unknown]
